FAERS Safety Report 9328629 (Version 1)
Quarter: 2013Q2

REPORT INFORMATION
  Report Type: Spontaneous
  Country: US (occurrence: US)
  Receive Date: 20130604
  Receipt Date: 20130604
  Transmission Date: 20140414
  Serious: No
  Sender: FDA-Public Use
  Company Number: US-SANOFI-AVENTIS-2012SA070107

PATIENT
  Age: 45 Year
  Sex: Female
  Weight: 50 kg

DRUGS (8)
  1. LANTUS [Suspect]
     Indication: TYPE 1 DIABETES MELLITUS
     Route: 058
     Dates: start: 2000, end: 20120801
  2. LANTUS SOLOSTAR [Suspect]
     Indication: TYPE 1 DIABETES MELLITUS
     Dosage: DOSAGE: BID DOSE OF 5 UNITS AND 4 UNITS
     Route: 058
     Dates: start: 20120801, end: 20120908
  3. SOLOSTAR [Suspect]
     Indication: TYPE 1 DIABETES MELLITUS
     Dates: start: 20120801, end: 20120908
  4. HUMALOG [Concomitant]
     Indication: DIABETES MELLITUS
  5. ATORVASTATIN [Concomitant]
     Indication: DIABETES MELLITUS
  6. LISINOPRIL [Concomitant]
  7. ASPIRIN [Concomitant]
  8. XALATAN [Concomitant]
     Indication: GLAUCOMA

REACTIONS (1)
  - Visual acuity reduced [Not Recovered/Not Resolved]
